FAERS Safety Report 10055610 (Version 1)
Quarter: 2014Q2

REPORT INFORMATION
  Report Type: Spontaneous
  Country: None (occurrence: None)
  Receive Date: 20140402
  Receipt Date: 20140402
  Transmission Date: 20141212
  Serious: Yes (Death)
  Sender: FDA-Public Use
  Company Number: None

PATIENT
  Age: 87 Year
  Sex: Male
  Weight: 62 kg

DRUGS (4)
  1. ASPIRIN 325 MG [Suspect]
     Indication: MYOCARDIAL INFARCTION
     Dosage: 1 TABLET, QD, ORAL
     Route: 048
  2. ASPIRIN 325 MG [Suspect]
     Indication: CORONARY ARTERY DISEASE
     Dosage: 1 TABLET, QD, ORAL
     Route: 048
  3. PLAVIX [Suspect]
     Indication: MYOCARDIAL INFARCTION
     Dosage: 1 TABLET, QD, ORAL
     Route: 048
  4. PLAVIX [Suspect]
     Dosage: 1 TABLET, QD, ORAL
     Route: 048

REACTIONS (5)
  - Diverticulum intestinal haemorrhagic [None]
  - Hypotension [None]
  - Anaemia [None]
  - Shock haemorrhagic [None]
  - Hypovolaemic shock [None]
